FAERS Safety Report 15377776 (Version 1)
Quarter: 2018Q3

REPORT INFORMATION
  Report Type: Spontaneous
  Country: US (occurrence: US)
  Receive Date: 20180913
  Receipt Date: 20180913
  Transmission Date: 20181010
  Serious: Yes (Other)
  Sender: FDA-Public Use
  Company Number: US-009507513-1809USA003249

PATIENT
  Age: 27 Year
  Sex: Female

DRUGS (1)
  1. NEXPLANON [Suspect]
     Active Substance: ETONOGESTREL
     Indication: CONTRACEPTION
     Dosage: SINGLE DOSE, ONCE FOR UP TO THREE YEARS
     Route: 059

REACTIONS (4)
  - Device dislocation [Recovered/Resolved]
  - Implant site swelling [Recovered/Resolved]
  - Implant site bruising [Recovered/Resolved]
  - Musculoskeletal discomfort [Recovered/Resolved]
